FAERS Safety Report 15722447 (Version 3)
Quarter: 2019Q2

REPORT INFORMATION
  Report Type: Report from Study
  Country: US (occurrence: US)
  Receive Date: 20181214
  Receipt Date: 20190503
  Transmission Date: 20190711
  Serious: No
  Sender: FDA-Public Use
  Company Number: US-ALEXION PHARMACEUTICALS INC.-A201816251

PATIENT
  Sex: Male

DRUGS (1)
  1. SOLIRIS [Suspect]
     Active Substance: ECULIZUMAB
     Indication: PRODUCT USED FOR UNKNOWN INDICATION
     Dosage: 900 MG, Q2W
     Route: 065

REACTIONS (5)
  - Fatigue [Not Recovered/Not Resolved]
  - Drug ineffective [Unknown]
  - Abdominal pain upper [Unknown]
  - Haemoglobin decreased [Unknown]
  - Arthralgia [Unknown]
